FAERS Safety Report 8876597 (Version 1)
Quarter: 2012Q4

REPORT INFORMATION
  Report Type: 
  Country: US (occurrence: US)
  Receive Date: 20121023
  Receipt Date: 20121023
  Transmission Date: 20130627
  Serious: Yes (Hospitalization)
  Sender: FDA-Public Use
  Company Number: US-ASTELLAS-2012US008052

PATIENT
  Age: 60 Year
  Sex: Male
  Weight: 57 kg

DRUGS (6)
  1. PROGRAF [Suspect]
     Indication: LIVER TRANSPLANT
     Dosage: 1 mg, bid
     Route: 048
     Dates: start: 20120623
  2. TAMSULOSIN [Concomitant]
     Indication: BENIGN PROSTATIC HYPERPLASIA
     Dosage: 0.4 mg, UID/QD
     Route: 048
     Dates: start: 20120623
  3. BACTRIM [Concomitant]
     Indication: INFECTION
     Dosage: 80 mg, UID/QD
     Route: 048
     Dates: start: 20120623
  4. PLAVIX [Concomitant]
     Indication: COAGULOPATHY
     Dosage: 75 mg, UID/QD
     Route: 048
     Dates: start: 20120623
  5. OMEPRAZOLE [Concomitant]
     Indication: DYSPEPSIA
     Dosage: 20 mg, UID/QD
     Route: 048
  6. CLINDAMYCIN [Concomitant]
     Indication: INFECTION
     Dosage: 150 mg, bid
     Route: 048
     Dates: start: 20120918

REACTIONS (1)
  - Dehydration [Unknown]
